FAERS Safety Report 7750615-8 (Version None)
Quarter: 2011Q3

REPORT INFORMATION
  Report Type: 
  Country: None (occurrence: None)
  Receive Date: 20110914
  Receipt Date: 20110908
  Transmission Date: 20111222
  Serious: Yes (Hospitalization)
  Sender: FDA-Public Use
  Company Number: US-GLAXOSMITHKLINE-A0883279A

PATIENT
  Age: 42 Year
  Sex: Male

DRUGS (9)
  1. GLIPIZIDE [Concomitant]
  2. FLEXERIL [Concomitant]
  3. AVANDIA [Suspect]
     Indication: TYPE 2 DIABETES MELLITUS
     Dosage: 8MG PER DAY
     Route: 048
     Dates: start: 20030530, end: 20080820
  4. ZANTAC [Concomitant]
  5. LEXAPRO [Concomitant]
  6. PRILOSEC [Concomitant]
  7. GLUCOPHAGE [Concomitant]
  8. INSULIN [Concomitant]
  9. TOPROL-XL [Concomitant]

REACTIONS (4)
  - CORONARY ARTERY DISEASE [None]
  - HYPERLIPIDAEMIA [None]
  - CARDIAC DISORDER [None]
  - ANGINA UNSTABLE [None]
